FAERS Safety Report 4862067-6 (Version None)
Quarter: 2005Q4

REPORT INFORMATION
  Report Type: 
  Country: None (occurrence: None)
  Receive Date: 20051201
  Receipt Date: 20050816
  Transmission Date: 20060501
  Serious: No
  Sender: FDA-Public Use
  Company Number: 2005PV001204

PATIENT
  Age: 73 Year
  Sex: Female
  Weight: 124.2856 kg

DRUGS (8)
  1. BYETTA [Suspect]
     Indication: DIABETES MELLITUS NON-INSULIN-DEPENDENT
     Dosage: 5 MCG;BID;SC
     Route: 058
     Dates: start: 20050730, end: 20050813
  2. GLUCOPHAGE [Concomitant]
  3. PRINIVIL [Concomitant]
  4. GLYNASE [Concomitant]
  5. AMITRIPTYLINE HCL [Concomitant]
  6. FUROSEMIDE [Concomitant]
  7. AMBIEN [Concomitant]
  8. XALATAN [Concomitant]

REACTIONS (1)
  - INFLUENZA LIKE ILLNESS [None]
